FAERS Safety Report 4814545-3 (Version None)
Quarter: 2005Q4

REPORT INFORMATION
  Report Type: 
  Country: None (occurrence: None)
  Receive Date: 20051028
  Receipt Date: 20051017
  Transmission Date: 20060501
  Serious: Yes (Hospitalization)
  Sender: FDA-Public Use
  Company Number: PHRM2005FR02786

PATIENT
  Age: 50 Year
  Sex: Female

DRUGS (4)
  1. LESCOL [Suspect]
     Indication: HYPERCHOLESTEROLAEMIA
     Dosage: 20 MG, QD
     Route: 048
  2. RIMIFON [Suspect]
     Indication: INFECTION PROPHYLAXIS
     Route: 048
  3. KENZEN [Concomitant]
     Route: 048
  4. LERCAN [Concomitant]
     Route: 048

REACTIONS (5)
  - CHOLESTASIS [None]
  - CYTOLYTIC HEPATITIS [None]
  - MYALGIA [None]
  - PARALYSIS [None]
  - RHABDOMYOLYSIS [None]
